FAERS Safety Report 8486950-8 (Version None)
Quarter: 2012Q3

REPORT INFORMATION
  Report Type: 
  Country: None (occurrence: None)
  Receive Date: 20120704
  Receipt Date: 20120619
  Transmission Date: 20120928
  Serious: Yes (Other)
  Sender: FDA-Public Use
  Company Number: CHPA2012US013422

PATIENT
  Age: 83 Year
  Sex: Male

DRUGS (4)
  1. EXCEDRIN EXTRA STRENGTH TABLETS [Suspect]
     Indication: ARTHRITIS
     Dosage: 8 DF, PER DAY
     Route: 048
  2. IBUPROFEN (ADVIL) [Concomitant]
     Dosage: 9X200MG, PER DAY
  3. DRUG THERAPY NOS [Concomitant]
     Indication: BLOOD PRESSURE
     Dosage: UNK, UNK
     Route: 048
  4. DRUG THERAPY NOS [Concomitant]
     Dosage: UNK, UNK
     Route: 048

REACTIONS (2)
  - CARDIAC FAILURE CONGESTIVE [None]
  - INCORRECT DRUG ADMINISTRATION DURATION [None]
